FAERS Safety Report 21044967 (Version 1)
Quarter: 2022Q3

REPORT INFORMATION
  Report Type: Spontaneous
  Country: FR (occurrence: FR)
  Receive Date: 20220705
  Receipt Date: 20220705
  Transmission Date: 20221027
  Serious: Yes (Hospitalization)
  Sender: FDA-Public Use
  Company Number: FR-SA-2019SA261368

PATIENT
  Age: 67 Year
  Sex: Male

DRUGS (2)
  1. DILTIAZEM HYDROCHLORIDE [Suspect]
     Active Substance: DILTIAZEM HYDROCHLORIDE
     Indication: Product used for unknown indication
     Dosage: 1 DF, QD; ORAL
     Route: 048
     Dates: start: 20170606, end: 20170613
  2. RIVAROXABAN [Suspect]
     Active Substance: RIVAROXABAN
     Indication: Atrial fibrillation
     Route: 048
     Dates: start: 20170606, end: 20170615

REACTIONS (1)
  - Drug reaction with eosinophilia and systemic symptoms [Recovering/Resolving]

NARRATIVE: CASE EVENT DATE: 20170615
